FAERS Safety Report 5044364-7 (Version None)
Quarter: 2006Q2

REPORT INFORMATION
  Report Type: 
  Country: None (occurrence: None)
  Receive Date: 20060629
  Receipt Date: 20060615
  Transmission Date: 20061013
  Serious: Yes (Death)
  Sender: FDA-Public Use
  Company Number: L06-FRA-02591-01

PATIENT
  Age: 26 Year
  Sex: Male

DRUGS (1)
  1. CITALOPRAM HYDROBROMIDE [Suspect]
     Indication: DEPRESSION
     Dates: start: 20050501, end: 20050501

REACTIONS (6)
  - AGITATION [None]
  - COMPLETED SUICIDE [None]
  - DEPRESSION [None]
  - FEAR [None]
  - HALLUCINATION [None]
  - SUICIDAL IDEATION [None]
